FAERS Safety Report 25315925 (Version 1)
Quarter: 2025Q2

REPORT INFORMATION
  Report Type: Spontaneous
  Country: IT (occurrence: IT)
  Receive Date: 20250515
  Receipt Date: 20250515
  Transmission Date: 20250717
  Serious: Yes (Other)
  Sender: CELLTRION
  Company Number: None

PATIENT

DRUGS (4)
  1. BEVACIZUMAB [Suspect]
     Active Substance: BEVACIZUMAB
     Indication: Rectal adenocarcinoma
     Route: 042
     Dates: start: 20240902, end: 20240902
  2. FLUOROURACIL [Suspect]
     Active Substance: FLUOROURACIL
     Indication: Rectal adenocarcinoma
     Route: 042
     Dates: start: 20240902, end: 20240902
  3. FLUOROURACIL [Suspect]
     Active Substance: FLUOROURACIL
     Route: 042
     Dates: start: 20240902, end: 20240902
  4. IRINOTECAN [Suspect]
     Active Substance: IRINOTECAN
     Indication: Rectal adenocarcinoma
     Route: 042
     Dates: start: 20240902, end: 20240902

REACTIONS (3)
  - Azotaemia [Unknown]
  - Secretion discharge [Recovering/Resolving]
  - Underdose [Unknown]

NARRATIVE: CASE EVENT DATE: 20240905
